FAERS Safety Report 25607853 (Version 1)
Quarter: 2025Q3

REPORT INFORMATION
  Report Type: Spontaneous
  Country: CA (occurrence: CA)
  Receive Date: 20250725
  Receipt Date: 20250725
  Transmission Date: 20251021
  Serious: Yes (Hospitalization)
  Sender: PHARMOBEDIENT CONSULTING, LLC
  Company Number: CA-Pharmobedient-000006

PATIENT
  Age: 53 Year
  Sex: Male

DRUGS (2)
  1. ACYCLOVIR [Suspect]
     Active Substance: ACYCLOVIR
     Indication: Herpes simplex
     Dosage: 2-WEEK COURSE
     Route: 042
     Dates: start: 2017
  2. VALACYCLOVIR [Suspect]
     Active Substance: VALACYCLOVIR HYDROCHLORIDE
     Indication: Herpes simplex
     Route: 048
     Dates: start: 2017

REACTIONS (2)
  - Drug resistance [Unknown]
  - Treatment failure [Unknown]
